FAERS Safety Report 24234576 (Version 2)
Quarter: 2024Q3

REPORT INFORMATION
  Report Type: Spontaneous
  Country: US (occurrence: US)
  Receive Date: 20240821
  Receipt Date: 20240826
  Transmission Date: 20241017
  Serious: Yes (Other)
  Sender: PFIZER
  Company Number: US-PFIZER INC-202400239625

PATIENT
  Age: 75 Year
  Sex: Male

DRUGS (2)
  1. XELJANZ XR [Suspect]
     Active Substance: TOFACITINIB CITRATE
     Dosage: 11 MG TWICE DAILY
     Route: 048
  2. XELJANZ XR [Suspect]
     Active Substance: TOFACITINIB CITRATE
     Dosage: 11 MG, 1X/DAY
     Route: 048

REACTIONS (6)
  - Psoriatic arthropathy [Not Recovered/Not Resolved]
  - Blood pressure increased [Unknown]
  - Platelet count decreased [Unknown]
  - Diarrhoea [Recovered/Resolved]
  - Joint range of motion decreased [Unknown]
  - Off label use [Unknown]
